FAERS Safety Report 19102180 (Version 1)
Quarter: 2021Q2

REPORT INFORMATION
  Report Type: Spontaneous
  Country: US (occurrence: US)
  Receive Date: 20210407
  Receipt Date: 20210407
  Transmission Date: 20210717
  Serious: No
  Sender: FDA-Public Use
  Company Number: None

PATIENT
  Age: 44 Year
  Sex: Female

DRUGS (1)
  1. AMBRISENTAN 10MG TABLETS 30/BO: 10MG [Suspect]
     Active Substance: AMBRISENTAN
     Indication: PULMONARY ARTERIAL HYPERTENSION
     Dates: start: 20190131

REACTIONS (5)
  - Treatment noncompliance [None]
  - Pulmonary congestion [None]
  - Pain in extremity [None]
  - Dyspnoea [None]
  - Pulmonary hypertension [None]

NARRATIVE: CASE EVENT DATE: 20210406
